FAERS Safety Report 7683632 (Version 19)
Quarter: 2014Q1

REPORT INFORMATION
  Report Type: Report from Study
  Country: CA (occurrence: CA)
  Receive Date: 20101125
  Receipt Date: 20140123
  Transmission Date: 20141002
  Serious: Yes (Hospitalization, Other)
  Sender: FDA-Public Use
  Company Number: PHHY2009CA37393

PATIENT
  Sex: Male

DRUGS (4)
  1. SANDOSTATIN LAR [Suspect]
     Indication: NEUROENDOCRINE TUMOUR
     Dosage: 30 MG, QMO
     Route: 030
     Dates: start: 20071017
  2. SANDOSTATIN LAR [Suspect]
     Dosage: 30 MG, EVERY 4 WEEKS
     Route: 030
  3. SANDOSTATIN LAR [Suspect]
     Dosage: 30 MG, QMO
     Route: 030
  4. HYDROCHLOROTHIAZIDE [Concomitant]
     Dosage: 12.5 MG, QD

REACTIONS (4)
  - Blood pressure increased [Unknown]
  - Prostate cancer [Unknown]
  - Second primary malignancy [Unknown]
  - Heart rate increased [Unknown]
